FAERS Safety Report 8018850-1 (Version None)
Quarter: 2012Q1

REPORT INFORMATION
  Report Type: 
  Country: None (occurrence: None)
  Receive Date: 20120103
  Receipt Date: 20111228
  Transmission Date: 20120608
  Serious: Yes (Other)
  Sender: FDA-Public Use
  Company Number: US-B.I. PHARMACEUTICALS,INC./RIDGEFIELD-2011-BP-28973BP

PATIENT
  Sex: Female

DRUGS (3)
  1. SPIRIVA [Suspect]
  2. OXYGEN [Concomitant]
  3. ADVAIR DISKUS 100/50 [Suspect]
     Route: 055

REACTIONS (5)
  - CHRONIC OBSTRUCTIVE PULMONARY DISEASE [None]
  - CATARACT [None]
  - BRONCHITIS [None]
  - DYSPNOEA [None]
  - PULMONARY CONGESTION [None]
